FAERS Safety Report 4727561-7 (Version None)
Quarter: 2005Q3

REPORT INFORMATION
  Report Type: 
  Country: None (occurrence: None)
  Receive Date: 20050727
  Receipt Date: 20050727
  Transmission Date: 20060218
  Serious: Yes (Other)
  Sender: FDA-Public Use
  Company Number: None

PATIENT
  Age: 35 Year
  Sex: Male

DRUGS (1)
  1. LEVOBUNOLOL OP SOLN 15CC PACIFIC PHARM [Suspect]
     Indication: GLAUCOMA
     Dosage: INSTILL 1 DROP IN EACH EYE EVERY MORNING
     Route: 047

REACTIONS (3)
  - EYE IRRITATION [None]
  - INSTILLATION SITE IRRITATION [None]
  - PHARMACEUTICAL PRODUCT COMPLAINT [None]
